FAERS Safety Report 4736518-1 (Version None)
Quarter: 2005Q3

REPORT INFORMATION
  Report Type: 
  Country: None (occurrence: None)
  Receive Date: 20050804
  Receipt Date: 20050804
  Transmission Date: 20060218
  Serious: Yes (Other)
  Sender: FDA-Public Use
  Company Number: None

PATIENT
  Age: 41 Year
  Sex: Male
  Weight: 83.9154 kg

DRUGS (4)
  1. NEURONTIN [Suspect]
     Indication: EYE PAIN
     Dosage: 2,700MG/DAY
     Dates: start: 20050413, end: 20050523
  2. SPHENOPALATINE GANGLION BLOCK [Concomitant]
  3. PROCHLORPERAZINE [Concomitant]
  4. HYDROCODONE [Concomitant]

REACTIONS (26)
  - ACNE [None]
  - CONDITION AGGRAVATED [None]
  - COORDINATION ABNORMAL [None]
  - COUGH [None]
  - DANDRUFF [None]
  - DRY EYE [None]
  - DRY SKIN [None]
  - DYSARTHRIA [None]
  - ENURESIS [None]
  - FATIGUE [None]
  - FUNGAL SKIN INFECTION [None]
  - LYMPHADENOPATHY [None]
  - NASAL CONGESTION [None]
  - NECROSIS [None]
  - NIGHT SWEATS [None]
  - PAIN [None]
  - PAROSMIA [None]
  - PERIPHERAL COLDNESS [None]
  - POLLAKIURIA [None]
  - PYREXIA [None]
  - RHINORRHOEA [None]
  - SINUS DISORDER [None]
  - SINUS HEADACHE [None]
  - THIRST [None]
  - TREMOR [None]
  - VISION BLURRED [None]
